FAERS Safety Report 4620000-6 (Version None)
Quarter: 2005Q1

REPORT INFORMATION
  Report Type: 
  Country: None (occurrence: None)
  Receive Date: 20050324
  Receipt Date: 20050315
  Transmission Date: 20050727
  Serious: Yes (Death, Hospitalization)
  Sender: FDA-Public Use
  Company Number: 200510030BSV

PATIENT
  Age: 91 Year
  Sex: Male

DRUGS (10)
  1. CIPROFLOXACIN [Suspect]
     Indication: HERPES VIRUS INFECTION
     Dosage: ORAL
     Route: 048
     Dates: start: 20041125, end: 20041205
  2. CIPROFLOXACIN [Suspect]
     Indication: INFECTION
     Dosage: ORAL
     Route: 048
     Dates: start: 20041125, end: 20041205
  3. HERACILLIN (FLUCLOXACILLIN) [Suspect]
     Indication: HERPES VIRUS INFECTION
     Dosage: ORAL
     Route: 048
     Dates: start: 20041110, end: 20041120
  4. HERACILLIN (FLUCLOXACILLIN) [Suspect]
     Indication: INFECTION
     Dosage: ORAL
     Route: 048
     Dates: start: 20041110, end: 20041120
  5. NEURONTIN [Concomitant]
  6. ALVEDON [Concomitant]
  7. DEXOFEN [Concomitant]
  8. ASPIRIN [Concomitant]
  9. KREDEX [Concomitant]
  10. FEM-MONO [Concomitant]

REACTIONS (3)
  - APATHY [None]
  - BEDRIDDEN [None]
  - CHOLESTASIS [None]
